FAERS Safety Report 14846235 (Version 2)
Quarter: 2018Q2

REPORT INFORMATION
  Report Type: Spontaneous
  Country: US (occurrence: US)
  Receive Date: 20180504
  Receipt Date: 20180522
  Transmission Date: 20180711
  Serious: No
  Sender: FDA-Public Use
  Company Number: US-TEVA-2018-US-888170

PATIENT
  Age: 39 Year
  Sex: Female
  Weight: 44 kg

DRUGS (15)
  1. ZOFRAN [Concomitant]
     Active Substance: ONDANSETRON HYDROCHLORIDE
  2. ALLOPURINOL. [Concomitant]
     Active Substance: ALLOPURINOL
  3. SYNRIBO [Suspect]
     Active Substance: OMACETAXINE MEPESUCCINATE
     Indication: CHRONIC MYELOID LEUKAEMIA
     Dosage: ONE DOSE
     Dates: start: 20180424
  4. IMITREX [Concomitant]
     Active Substance: SUMATRIPTAN SUCCINATE
  5. VIT. D3 [Concomitant]
  6. ALGLUTAMINE [Concomitant]
  7. SYNRIBO [Suspect]
     Active Substance: OMACETAXINE MEPESUCCINATE
     Dosage: ONE DOSE
     Dates: start: 20180426
  8. SPIRONOLACTONE. [Concomitant]
     Active Substance: SPIRONOLACTONE
  9. VALIUM [Concomitant]
     Active Substance: DIAZEPAM
  10. POTASSIUM [Concomitant]
     Active Substance: POTASSIUM
  11. ARMOUR THYROID [Concomitant]
     Active Substance: THYROID, PORCINE
  12. OXYCODONE [Concomitant]
     Active Substance: OXYCODONE
  13. GLUCOPHAGE [Concomitant]
     Active Substance: METFORMIN HYDROCHLORIDE
  14. MAGNESIUM [Concomitant]
     Active Substance: MAGNESIUM
  15. SYNRIBO [Suspect]
     Active Substance: OMACETAXINE MEPESUCCINATE
     Dates: start: 20180425

REACTIONS (3)
  - Headache [Unknown]
  - Urine output increased [Not Recovered/Not Resolved]
  - Injection site erythema [Not Recovered/Not Resolved]

NARRATIVE: CASE EVENT DATE: 20180424
